FAERS Safety Report 7402203-0 (Version None)
Quarter: 2011Q2

REPORT INFORMATION
  Report Type: 
  Country: None (occurrence: None)
  Receive Date: 20110408
  Receipt Date: 20110404
  Transmission Date: 20111010
  Serious: Yes (Other)
  Sender: FDA-Public Use
  Company Number: FR-ELI_LILLY_AND_COMPANY-FR201104000755

PATIENT
  Age: 70 Year
  Sex: Female

DRUGS (3)
  1. GLUCOPHAGE [Concomitant]
     Dosage: 1000 MG, QD
     Route: 048
  2. BYETTA [Suspect]
     Dosage: 10 UG, UNK
     Route: 058
     Dates: start: 20081001
  3. BYETTA [Suspect]
     Dosage: 5 UG, UNK
     Dates: start: 20080901

REACTIONS (3)
  - DIARRHOEA [None]
  - BREAST CANCER RECURRENT [None]
  - ABDOMINAL PAIN UPPER [None]
